FAERS Safety Report 5089435-4 (Version None)
Quarter: 2006Q3

REPORT INFORMATION
  Report Type: 
  Country: None (occurrence: None)
  Receive Date: 20060822
  Receipt Date: 20060815
  Transmission Date: 20061208
  Serious: Yes (Other)
  Sender: FDA-Public Use
  Company Number: US018124

PATIENT
  Sex: Male

DRUGS (6)
  1. GABITRIL [Suspect]
     Indication: ANXIETY
     Dosage: 4 MG QD ORAL
     Route: 048
     Dates: start: 20050201
  2. GABITRIL [Suspect]
     Indication: ANXIETY
     Dosage: 8 MG QD ORAL
     Route: 048
     Dates: start: 20050101, end: 20050101
  3. GABITRIL [Suspect]
     Indication: ANXIETY
     Dosage: 12 MG QD ORAL
     Route: 048
     Dates: start: 20050101
  4. GABITRIL [Suspect]
     Indication: ANXIETY
     Dosage: 24 MG QD ORAL
     Route: 048
     Dates: start: 20050201
  5. SEROQUEL [Concomitant]
  6. CONCERTA [Concomitant]

REACTIONS (3)
  - AGITATION [None]
  - BALANCE DISORDER [None]
  - CONVULSION [None]
